FAERS Safety Report 23920590 (Version 1)
Quarter: 2024Q2

REPORT INFORMATION
  Report Type: Report from Study
  Country: US (occurrence: US)
  Receive Date: 20240530
  Receipt Date: 20240530
  Transmission Date: 20240716
  Serious: Yes (Hospitalization)
  Sender: FDA-Public Use
  Company Number: US-TEVA-VS-3201120

PATIENT
  Age: 62 Year
  Sex: Female

DRUGS (9)
  1. AUSTEDO XR [Suspect]
     Active Substance: DEUTETRABENAZINE
     Indication: Dyskinesia
     Dosage: 6MG 1 TABLET BY MOUTH EVERY DAY ALONG WITH 24MG TABLET FOR *TOTAL DAILY DOSE =30MG
     Route: 065
     Dates: start: 20240418
  2. CARVEDILOL [Concomitant]
     Active Substance: CARVEDILOL
     Route: 065
  3. LISINOPRIL [Concomitant]
     Active Substance: LISINOPRIL
     Route: 065
  4. ONDANSETRON [Concomitant]
     Active Substance: ONDANSETRON
     Route: 065
  5. PANTOPRAZOLE [Concomitant]
     Active Substance: PANTOPRAZOLE
     Route: 065
  6. Ropinirole H [Concomitant]
     Route: 065
  7. Sertaline H [Concomitant]
     Route: 065
  8. Simavastin [Concomitant]
     Route: 065
  9. TETRABENAZINE [Concomitant]
     Active Substance: TETRABENAZINE
     Route: 065

REACTIONS (1)
  - Ischaemic stroke [Unknown]

NARRATIVE: CASE EVENT DATE: 20240421
